FAERS Safety Report 23889716 (Version 3)
Quarter: 2024Q4

REPORT INFORMATION
  Report Type: Spontaneous
  Country: US (occurrence: US)
  Receive Date: 20240523
  Receipt Date: 20241127
  Transmission Date: 20250115
  Serious: No
  Sender: NOVARTIS
  Company Number: US-002147023-NVSC2024US106647

PATIENT
  Sex: Female

DRUGS (4)
  1. FEMARA [Suspect]
     Active Substance: LETROZOLE
     Indication: Breast cancer metastatic
     Dosage: UNK
     Route: 065
     Dates: start: 201704
  2. FEMARA [Suspect]
     Active Substance: LETROZOLE
     Indication: Metastases to liver
  3. IBRANCE [Suspect]
     Active Substance: PALBOCICLIB
     Indication: Breast cancer metastatic
     Dosage: UNK (1 CAPSULE DAILY FOR 21 DAYS ON THEN 7 DAYS OFF)
     Route: 065
     Dates: start: 2017, end: 201810
  4. IBRANCE [Suspect]
     Active Substance: PALBOCICLIB
     Indication: Metastases to liver
     Dosage: 75 MG, QD (28-DAY SUPPLY, DIRECTIONS/DOSING INSTRUCTIONS WAS TAKE ONE CAPSULE BY MOUTH ONCE DAILY BE
     Route: 065
     Dates: start: 201901

REACTIONS (1)
  - Fatigue [Unknown]
